FAERS Safety Report 7636051-3 (Version None)
Quarter: 2011Q3

REPORT INFORMATION
  Report Type: 
  Country: None (occurrence: None)
  Receive Date: 20110726
  Receipt Date: 20110713
  Transmission Date: 20111222
  Serious: Yes (Death)
  Sender: FDA-Public Use
  Company Number: DE-ROCHE-787764

PATIENT
  Sex: Male
  Weight: 50 kg

DRUGS (5)
  1. CLEMASTINE FUMARATE [Concomitant]
     Indication: PREMEDICATION
     Route: 042
     Dates: start: 20110505, end: 20110505
  2. BEVACIZUMAB [Suspect]
     Dosage: INFUSION OVER 90 MIN
     Route: 042
     Dates: start: 20110505, end: 20110505
  3. PACLITAXEL [Concomitant]
     Route: 042
     Dates: start: 20110505, end: 20110505
  4. FENISTIL (DIMETINDENE) [Concomitant]
     Indication: PREMEDICATION
     Route: 042
     Dates: start: 20110505, end: 20110505
  5. DEXAMETHASONE [Concomitant]
     Indication: PREMEDICATION
     Route: 042
     Dates: start: 20110505, end: 20110505

REACTIONS (1)
  - PULMONARY HAEMORRHAGE [None]
